FAERS Safety Report 23791400 (Version 2)
Quarter: 2024Q2

REPORT INFORMATION
  Report Type: Report from Study
  Country: FR (occurrence: FR)
  Receive Date: 20240429
  Receipt Date: 20240608
  Transmission Date: 20240716
  Serious: Yes (Death, Disabling)
  Sender: FDA-Public Use
  Company Number: FR-ABBVIE-5734021

PATIENT
  Age: 87 Year
  Sex: Female

DRUGS (3)
  1. CARBIDOPA\LEVODOPA [Suspect]
     Active Substance: CARBIDOPA\LEVODOPA
     Indication: Parkinson^s disease
     Route: 050
     Dates: start: 20200716
  2. CARBIDOPA\LEVODOPA [Suspect]
     Active Substance: CARBIDOPA\LEVODOPA
  3. OXYGEN [Concomitant]
     Active Substance: OXYGEN
     Indication: General physical health deterioration
     Dosage: (1 L/MIN) IN A DISCONTINUED MANNER

REACTIONS (6)
  - General physical health deterioration [Fatal]
  - Hypersomnia [Unknown]
  - Bedridden [Unknown]
  - Communication disorder [Unknown]
  - Unevaluable event [Unknown]
  - Feeding disorder [Unknown]

NARRATIVE: CASE EVENT DATE: 20240423
